FAERS Safety Report 4496910-X (Version None)
Quarter: 2004Q4

REPORT INFORMATION
  Report Type: 
  Country: None (occurrence: None)
  Receive Date: 20041109
  Receipt Date: 20041028
  Transmission Date: 20050328
  Serious: Yes (Other)
  Sender: FDA-Public Use
  Company Number: JP-MERCK-0411USA00104

PATIENT
  Age: 59 Year
  Sex: Female

DRUGS (6)
  1. PEPCID [Suspect]
     Indication: VARICES OESOPHAGEAL
     Route: 048
     Dates: start: 20040907, end: 20041015
  2. GASMOTIN [Suspect]
     Indication: DIABETES MELLITUS INSULIN-DEPENDENT
     Route: 048
     Dates: start: 20040907, end: 20041015
  3. ALLOID G [Suspect]
     Indication: VARICES OESOPHAGEAL
     Route: 048
     Dates: start: 20040907, end: 20041015
  4. ULCERMIN [Suspect]
     Indication: VARICES OESOPHAGEAL
     Route: 048
     Dates: start: 20040907, end: 20041015
  5. ALDACTONE [Concomitant]
     Route: 048
     Dates: start: 20040907
  6. LASIX [Concomitant]
     Route: 048
     Dates: start: 20040907

REACTIONS (5)
  - BONE MARROW DEPRESSION [None]
  - NEOPLASM MALIGNANT [None]
  - NEUTROPHIL COUNT DECREASED [None]
  - SPLEEN DISORDER [None]
  - WHITE BLOOD CELL COUNT DECREASED [None]
